FAERS Safety Report 6429027-5 (Version None)
Quarter: 2009Q4

REPORT INFORMATION
  Report Type: 
  Country: None (occurrence: None)
  Receive Date: 20091102
  Receipt Date: 20091019
  Transmission Date: 20100525
  Serious: Yes (Hospitalization, Other)
  Sender: FDA-Public Use
  Company Number: A-NJ2009-28398

PATIENT
  Age: 74 Year
  Sex: Female

DRUGS (10)
  1. TRACLEER [Suspect]
     Indication: PULMONARY ARTERIAL HYPERTENSION
     Dosage: 125 MG, BID, ORAL
     Route: 048
     Dates: start: 20070518
  2. REVATIO [Concomitant]
  3. COUMADIN [Concomitant]
  4. PRILOSEC [Concomitant]
  5. VYTORIN [Concomitant]
  6. MAGNESIUM (MAGNESIUM) [Concomitant]
  7. XANAX [Concomitant]
  8. BUMEX [Concomitant]
  9. PRO-AIR (PROCATEROL HYDROCHLORIDE) [Concomitant]
  10. OXYGEN (OXYGEN) [Concomitant]

REACTIONS (8)
  - DROOLING [None]
  - DYSPHAGIA [None]
  - HEART RATE INCREASED [None]
  - LOCAL SWELLING [None]
  - NECK PAIN [None]
  - ORAL CANDIDIASIS [None]
  - ORAL PAIN [None]
  - UPPER RESPIRATORY TRACT INFECTION [None]
